FAERS Safety Report 15097623 (Version 4)
Quarter: 2018Q3

REPORT INFORMATION
  Report Type: Spontaneous
  Country: JP (occurrence: JP)
  Receive Date: 20180702
  Receipt Date: 20180808
  Transmission Date: 20181010
  Serious: Yes (Other)
  Sender: FDA-Public Use
  Company Number: JP-BRACCO-2018JP03428

PATIENT
  Age: 77 Year
  Sex: Female

DRUGS (31)
  1. KANAMYCIN [Concomitant]
     Active Substance: KANAMYCIN\KANAMYCIN A SULFATE
     Dosage: UNK
  2. MONILAC [Concomitant]
     Active Substance: LACTULOSE
     Dosage: UNK
  3. APIXABAN [Concomitant]
     Active Substance: APIXABAN
     Dosage: UNK
  4. KANAMYCIN [Concomitant]
     Active Substance: KANAMYCIN\KANAMYCIN A SULFATE
     Dosage: UNK
  5. KANAMYCIN [Concomitant]
     Active Substance: KANAMYCIN\KANAMYCIN A SULFATE
     Dosage: UNK
  6. SENNOSIDE [Concomitant]
     Active Substance: SENNOSIDES
     Dosage: UNK
  7. TRAMAL [Concomitant]
     Active Substance: TRAMADOL
     Dosage: UNK
  8. KANAMYCIN [Concomitant]
     Active Substance: KANAMYCIN\KANAMYCIN A SULFATE
     Dosage: UNK
  9. SENNOSIDE [Concomitant]
     Active Substance: SENNOSIDES
     Dosage: UNK
  10. TRAMAL [Concomitant]
     Active Substance: TRAMADOL
     Dosage: UNK
  11. APIXABAN [Concomitant]
     Active Substance: APIXABAN
     Dosage: UNK
  12. APIXABAN [Concomitant]
     Active Substance: APIXABAN
     Dosage: UNK
  13. IOPAMIRON [Suspect]
     Active Substance: IOPAMIDOL
     Indication: COMPUTERISED TOMOGRAM
     Dosage: 75 ML, ONCE, 2.13ML/S
     Route: 042
     Dates: start: 20180531, end: 20180531
  14. TAMBOCOR [Concomitant]
     Active Substance: FLECAINIDE ACETATE
     Dosage: UNK
  15. KANAMYCIN [Concomitant]
     Active Substance: KANAMYCIN\KANAMYCIN A SULFATE
     Dosage: UNK
  16. SENNOSIDE [Concomitant]
     Active Substance: SENNOSIDES
     Dosage: UNK
  17. SENNOSIDE [Concomitant]
     Active Substance: SENNOSIDES
     Dosage: UNK
  18. SENNOSIDE [Concomitant]
     Active Substance: SENNOSIDES
     Dosage: UNK
  19. TRAMAL [Concomitant]
     Active Substance: TRAMADOL
     Dosage: UNK
  20. TRAMAL [Concomitant]
     Active Substance: TRAMADOL
     Dosage: UNK
  21. TAMBOCOR [Concomitant]
     Active Substance: FLECAINIDE ACETATE
     Dosage: UNK
  22. MONILAC [Concomitant]
     Active Substance: LACTULOSE
     Dosage: UNK
  23. MONILAC [Concomitant]
     Active Substance: LACTULOSE
     Dosage: UNK
  24. MONILAC [Concomitant]
     Active Substance: LACTULOSE
     Dosage: UNK
  25. TRAMAL [Concomitant]
     Active Substance: TRAMADOL
     Dosage: UNK
  26. APIXABAN [Concomitant]
     Active Substance: APIXABAN
     Dosage: UNK
  27. APIXABAN [Concomitant]
     Active Substance: APIXABAN
     Dosage: UNK
  28. TAMBOCOR [Concomitant]
     Active Substance: FLECAINIDE ACETATE
     Dosage: UNK
  29. MONILAC [Concomitant]
     Active Substance: LACTULOSE
     Dosage: UNK
  30. TAMBOCOR [Concomitant]
     Active Substance: FLECAINIDE ACETATE
     Dosage: UNK
  31. TAMBOCOR [Concomitant]
     Active Substance: FLECAINIDE ACETATE
     Dosage: UNK

REACTIONS (2)
  - Nausea [Unknown]
  - Haematemesis [Recovered/Resolved]

NARRATIVE: CASE EVENT DATE: 20180531
